FAERS Safety Report 7511596-5 (Version None)
Quarter: 2011Q2

REPORT INFORMATION
  Report Type: 
  Country: None (occurrence: None)
  Receive Date: 20110531
  Receipt Date: 20110518
  Transmission Date: 20111010
  Serious: Yes (Hospitalization)
  Sender: FDA-Public Use
  Company Number: JP-JNJFOC-20110406568

PATIENT
  Sex: Male
  Weight: 60 kg

DRUGS (12)
  1. SIGMART [Concomitant]
     Indication: CARDIAC FAILURE CHRONIC
     Route: 048
     Dates: start: 20100218, end: 20100729
  2. SIGMART [Concomitant]
     Route: 048
     Dates: start: 20100730, end: 20100812
  3. ASPIRIN [Concomitant]
     Indication: ISCHAEMIC HEART DISEASE PROPHYLAXIS
     Route: 048
     Dates: end: 20110411
  4. GOLIMUMAB [Suspect]
     Route: 058
     Dates: start: 20110331
  5. METHOTREXATE [Concomitant]
     Indication: RHEUMATOID ARTHRITIS
     Route: 048
     Dates: start: 20110121, end: 20110331
  6. ASPIRIN [Concomitant]
     Indication: MYOCARDIAL INFARCTION
     Route: 048
     Dates: end: 20110411
  7. SIGMART [Concomitant]
     Route: 048
     Dates: start: 20100813, end: 20110411
  8. FOLIC ACID [Concomitant]
     Indication: PROPHYLAXIS
     Route: 048
     Dates: start: 20110109, end: 20110331
  9. FAMOTIDINE [Concomitant]
     Indication: PROPHYLAXIS AGAINST GASTROINTESTINAL ULCER
     Route: 048
     Dates: end: 20110411
  10. GOLIMUMAB [Suspect]
     Indication: RHEUMATOID ARTHRITIS
     Route: 058
     Dates: start: 20090326
  11. ASPIRIN [Concomitant]
     Indication: MYOCARDIAL ISCHAEMIA
     Route: 048
     Dates: end: 20110411
  12. MOBIC [Suspect]
     Indication: RHEUMATOID ARTHRITIS
     Route: 048
     Dates: start: 20061122, end: 20110331

REACTIONS (3)
  - RENAL FAILURE ACUTE [None]
  - UROSEPSIS [None]
  - NEUTROPENIA [None]
